FAERS Safety Report 15274919 (Version 3)
Quarter: 2018Q3

REPORT INFORMATION
  Report Type: Spontaneous
  Country: US (occurrence: US)
  Receive Date: 20180814
  Receipt Date: 20180907
  Transmission Date: 20181010
  Serious: No
  Sender: FDA-Public Use
  Company Number: US-SA-2018SA222805

PATIENT
  Age: 59 Year
  Sex: Female

DRUGS (23)
  1. CRESTOR [Concomitant]
     Active Substance: ROSUVASTATIN CALCIUM
  2. ESCITALOPRAM [Concomitant]
     Active Substance: ESCITALOPRAM OXALATE
  3. LOSARTAN POTASSIUM. [Concomitant]
     Active Substance: LOSARTAN POTASSIUM
  4. VALACYCLOVIR [VALACICLOVIR] [Concomitant]
  5. CEPHALEXINE [Concomitant]
     Active Substance: CEPHALEXIN
  6. OXYCODONE/APAP [OXYCODONE;PARACETAMOL] [Concomitant]
  7. JARDIANCE [Concomitant]
     Active Substance: EMPAGLIFLOZIN
  8. OLOPATADINE. [Concomitant]
     Active Substance: OLOPATADINE
  9. DOXYCYCLINE HYDROCHLORIDE [Concomitant]
     Active Substance: DOXYCYCLINE HYDROCHLORIDE
  10. METOPROLOL. [Concomitant]
     Active Substance: METOPROLOL
  11. METFORMIN [Concomitant]
     Active Substance: METFORMIN HYDROCHLORIDE
  12. FLUCONAZOLE. [Concomitant]
     Active Substance: FLUCONAZOLE
  13. CYCLOSPORINE. [Concomitant]
     Active Substance: CYCLOSPORINE
  14. ATORVASTATIN [Concomitant]
     Active Substance: ATORVASTATIN
  15. MUPIROCIN. [Concomitant]
     Active Substance: MUPIROCIN
  16. PREDNISONE. [Concomitant]
     Active Substance: PREDNISONE
  17. AMOXCLAV [AMOXICILLIN TRIHYDRATE;CLAVULANATE POTASSIUM] [Concomitant]
  18. DUPIXENT [Suspect]
     Active Substance: DUPILUMAB
     Indication: DERMATITIS ATOPIC
     Dosage: 300 MG, QOW
     Route: 058
     Dates: start: 20180613
  19. ALPRAZOLAM. [Concomitant]
     Active Substance: ALPRAZOLAM
  20. LEVOFLOXACIN. [Concomitant]
     Active Substance: LEVOFLOXACIN
  21. PROMETHAZINE [Concomitant]
     Active Substance: PROMETHAZINE\PROMETHAZINE HYDROCHLORIDE
  22. DESONIDE. [Concomitant]
     Active Substance: DESONIDE
  23. HYDROXIZINE HCL [Concomitant]

REACTIONS (6)
  - Dry eye [Not Recovered/Not Resolved]
  - Paraesthesia oral [Not Recovered/Not Resolved]
  - Rash [Unknown]
  - Visual impairment [Unknown]
  - Therapeutic response decreased [Unknown]
  - Dermatitis [Unknown]

NARRATIVE: CASE EVENT DATE: 20180805
